FAERS Safety Report 10559049 (Version 2)
Quarter: 2014Q4

REPORT INFORMATION
  Report Type: Spontaneous
  Country: US (occurrence: US)
  Receive Date: 20141103
  Receipt Date: 20141103
  Transmission Date: 20150529
  Serious: Yes (Other)
  Sender: FDA-Public Use
  Company Number: US-AMGEN-USASP2014021958

PATIENT
  Age: 23 Year
  Sex: Female
  Weight: 55.78 kg

DRUGS (3)
  1. BUDESONIDE ALMUS [Concomitant]
     Dosage: UNK UNK, QD
     Route: 055
     Dates: start: 201402
  2. PRENATAL VITAMINS                  /07499601/ [Concomitant]
     Dosage: UNK UNK, DAILY
     Route: 065
     Dates: start: 20131101
  3. ENBREL [Suspect]
     Active Substance: ETANERCEPT
     Indication: PSORIATIC ARTHROPATHY
     Dosage: 50 MG, QWK
     Route: 030
     Dates: start: 20131001

REACTIONS (2)
  - Induced labour [Unknown]
  - Incorrect route of drug administration [Unknown]

NARRATIVE: CASE EVENT DATE: 20140829
